FAERS Safety Report 14955485 (Version 1)
Quarter: 2018Q2

REPORT INFORMATION
  Report Type: Spontaneous
  Country: SE (occurrence: SE)
  Receive Date: 20180531
  Receipt Date: 20180531
  Transmission Date: 20180711
  Serious: Yes (Other)
  Sender: FDA-Public Use
  Company Number: SE-CONCORDIA PHARMACEUTICALS INC.-E2B_00012012

PATIENT
  Age: 73 Year
  Sex: Male

DRUGS (6)
  1. BETAPRED [Suspect]
     Active Substance: BETAMETHASONE SODIUM PHOSPHATE
     Indication: CHRONIC OBSTRUCTIVE PULMONARY DISEASE
     Route: 042
     Dates: start: 20180128, end: 20180128
  2. COMBIVENT [Concomitant]
     Active Substance: ALBUTEROL SULFATE\IPRATROPIUM BROMIDE
     Route: 055
  3. ACETYLCYSTEIN MEDA 200 MG BRUSTABLETT [Concomitant]
  4. PREDNISOLONE. [Suspect]
     Active Substance: PREDNISOLONE
     Dates: end: 20180128
  5. WARAN [Concomitant]
     Active Substance: WARFARIN SODIUM
  6. PREDNISOLONE. [Suspect]
     Active Substance: PREDNISOLONE
     Indication: CHRONIC OBSTRUCTIVE PULMONARY DISEASE
     Dosage: I FEM DAGAR, D?REFTER 5 MG/DAG
     Dates: start: 20180129

REACTIONS (1)
  - Hallucination, visual [Recovered/Resolved]

NARRATIVE: CASE EVENT DATE: 201801
